FAERS Safety Report 5268874-2 (Version None)
Quarter: 2007Q1

REPORT INFORMATION
  Report Type: 
  Country: None (occurrence: None)
  Receive Date: 20070319
  Receipt Date: 20070309
  Transmission Date: 20070707
  Serious: Yes (Other)
  Sender: FDA-Public Use
  Company Number: PHBS2006JP12068

PATIENT
  Sex: Male

DRUGS (1)
  1. ZOMETA [Suspect]
     Indication: METASTASES TO BONE
     Dosage: 4 MG, VIA DRIP INFUSION
     Route: 042
     Dates: start: 20060601

REACTIONS (3)
  - PAIN IN JAW [None]
  - PAROTITIS [None]
  - SWELLING [None]
